FAERS Safety Report 8407123-0 (Version None)
Quarter: 2012Q2

REPORT INFORMATION
  Report Type: 
  Country: None (occurrence: None)
  Receive Date: 20120604
  Receipt Date: 20120530
  Transmission Date: 20120825
  Serious: Yes (Other)
  Sender: FDA-Public Use
  Company Number: US-ROCHE-1074021

PATIENT
  Sex: Male

DRUGS (4)
  1. IBUPROFEN [Concomitant]
  2. XELODA [Suspect]
     Indication: PRODUCT USED FOR UNKNOWN INDICATION
     Route: 048
  3. XELODA [Suspect]
  4. FLUOROURACIL [Concomitant]

REACTIONS (2)
  - DRUG EFFECT DECREASED [None]
  - DISEASE PROGRESSION [None]
